FAERS Safety Report 9343699 (Version 1)
Quarter: 2013Q2

REPORT INFORMATION
  Report Type: Report from Study
  Country: TH (occurrence: TH)
  Receive Date: 20130612
  Receipt Date: 20130612
  Transmission Date: 20140414
  Serious: Yes (Other)
  Sender: FDA-Public Use
  Company Number: PHHY2013TH058194

PATIENT
  Age: 58 Year
  Sex: Female

DRUGS (5)
  1. ACLASTA [Suspect]
     Indication: OSTEOPOROSIS
     Dosage: UNK UKN, UNK
     Route: 042
  2. ACLASTA [Suspect]
     Dosage: UKN
     Route: 042
     Dates: start: 2012
  3. CALCIUM [Concomitant]
     Dosage: UNK UKN, UNK
  4. VITAMIN D [Concomitant]
     Dosage: UNK UKN, UNK
  5. VITAMIN K [Concomitant]
     Dosage: UNK UKN, UNK

REACTIONS (3)
  - Dental caries [Recovering/Resolving]
  - Sensitivity of teeth [Not Recovered/Not Resolved]
  - Tooth disorder [Unknown]
